FAERS Safety Report 8250493-7 (Version None)
Quarter: 2012Q2

REPORT INFORMATION
  Report Type: 
  Country: None (occurrence: None)
  Receive Date: 20120402
  Receipt Date: 20120402
  Transmission Date: 20120825
  Serious: Yes (Life-Threatening)
  Sender: FDA-Public Use
  Company Number: None

PATIENT
  Age: 38 Year
  Sex: Female
  Weight: 81.646 kg

DRUGS (2)
  1. LITHIUM CARBONATE [Concomitant]
     Indication: BIPOLAR I DISORDER
     Dosage: 600MG
     Route: 048
     Dates: start: 20000101, end: 20120101
  2. PROZAC [Suspect]
     Indication: BIPOLAR I DISORDER
     Dosage: 40MG
     Route: 048
     Dates: start: 20070101, end: 20120101

REACTIONS (39)
  - ANXIETY [None]
  - TREMOR [None]
  - SWOLLEN TONGUE [None]
  - DYSPNOEA [None]
  - NAUSEA [None]
  - FATIGUE [None]
  - COORDINATION ABNORMAL [None]
  - DIZZINESS [None]
  - PRURITUS [None]
  - SWELLING [None]
  - DIARRHOEA [None]
  - ECONOMIC PROBLEM [None]
  - MALAISE [None]
  - HEADACHE [None]
  - YAWNING [None]
  - MUSCLE SPASMS [None]
  - SWELLING FACE [None]
  - MARITAL PROBLEM [None]
  - INSOMNIA [None]
  - MENTAL DISORDER [None]
  - MOOD ALTERED [None]
  - SEXUAL DYSFUNCTION [None]
  - CONFUSIONAL STATE [None]
  - SOMNOLENCE [None]
  - MUSCULAR WEAKNESS [None]
  - TONGUE PRURITUS [None]
  - PHARYNGEAL OEDEMA [None]
  - EMOTIONAL DISORDER [None]
  - DECREASED APPETITE [None]
  - AGITATION [None]
  - ENERGY INCREASED [None]
  - HEART RATE INCREASED [None]
  - THROAT IRRITATION [None]
  - FAMILY STRESS [None]
  - HYPERHIDROSIS [None]
  - SUICIDAL IDEATION [None]
  - HALLUCINATION [None]
  - RESTLESSNESS [None]
  - MUSCLE TWITCHING [None]
